FAERS Safety Report 24374877 (Version 1)
Quarter: 2024Q3

REPORT INFORMATION
  Report Type: Spontaneous
  Country: CA (occurrence: CA)
  Receive Date: 20240927
  Receipt Date: 20240927
  Transmission Date: 20241017
  Serious: Yes (Other)
  Sender: TEVA
  Company Number: CA-TEVA-VS-3245816

PATIENT
  Age: 81 Year
  Sex: Male

DRUGS (4)
  1. DABIGATRAN [Suspect]
     Active Substance: DABIGATRAN
     Indication: Anticoagulant therapy
     Route: 048
  2. DABIGATRAN [Suspect]
     Active Substance: DABIGATRAN
     Indication: Anticoagulant therapy
     Route: 048
  3. CLOPIDOGREL [Suspect]
     Active Substance: CLOPIDOGREL BISULFATE
     Indication: Antiplatelet therapy
     Route: 065
  4. ASPIRIN [Suspect]
     Active Substance: ASPIRIN
     Indication: Antiplatelet therapy
     Route: 065

REACTIONS (1)
  - Muscle haemorrhage [Unknown]
